FAERS Safety Report 21809134 (Version 1)
Quarter: 2023Q1

REPORT INFORMATION
  Report Type: Report from Study
  Country: US (occurrence: US)
  Receive Date: 20230103
  Receipt Date: 20230103
  Transmission Date: 20230418
  Serious: Yes (Other)
  Sender: FDA-Public Use
  Company Number: US-ALNYLAM PHARMACEUTICALS, INC.-ALN-2022-004725

PATIENT

DRUGS (2)
  1. GIVLAARI [Suspect]
     Active Substance: GIVOSIRAN SODIUM
     Indication: Porphyria
     Dosage: UNK UNK, MONTHLY
     Route: 065
     Dates: start: 20200925, end: 202108
  2. GIVLAARI [Suspect]
     Active Substance: GIVOSIRAN SODIUM
     Dosage: UNK UNK, MONTHLY
     Route: 065
     Dates: start: 202202

REACTIONS (3)
  - Necrotising fasciitis [Unknown]
  - Depression [Unknown]
  - Skin ulcer [Unknown]
